FAERS Safety Report 26051047 (Version 1)
Quarter: 2025Q4

REPORT INFORMATION
  Report Type: Spontaneous
  Country: EU (occurrence: EU)
  Receive Date: 20251117
  Receipt Date: 20251117
  Transmission Date: 20260118
  Serious: Yes (Hospitalization, Other)
  Sender: BAXTER
  Company Number: None

PATIENT
  Age: 76 Year
  Sex: Female
  Weight: 58 kg

DRUGS (10)
  1. DOXORUBICIN [Suspect]
     Active Substance: DOXORUBICIN
     Indication: Ovarian cancer metastatic
     Dosage: 1 DOSAGE FORM, 1 CYCLICAL, 6 TREATMENT CYCLES
     Route: 042
     Dates: start: 201811, end: 201904
  2. PACLITAXEL [Suspect]
     Active Substance: PACLITAXEL
     Indication: Ovarian cancer metastatic
     Dosage: 1 DOSAGE FORM, 1 CYCLICAL, 6 TREATMENT CYCLES
     Route: 042
     Dates: start: 201303, end: 201309
  3. PACLITAXEL [Suspect]
     Active Substance: PACLITAXEL
     Dosage: 1 DOSAGE FORM, 1X A WEEK, 7 TREATMENT CYCLES
     Route: 042
     Dates: start: 202410, end: 20250403
  4. CARBOPLATIN [Suspect]
     Active Substance: CARBOPLATIN
     Indication: Ovarian cancer metastatic
     Dosage: 1 DOSAGE FORM, 1 CYCLICAL, 6 TREATMENT CYCLES
     Route: 042
     Dates: start: 201303, end: 201309
  5. CARBOPLATIN [Suspect]
     Active Substance: CARBOPLATIN
     Dosage: 1 DOSAGE FORM, 1 CYCLICAL, 6 TREATMENT CYCLES
     Route: 042
     Dates: start: 201811, end: 201904
  6. CARBOPLATIN [Suspect]
     Active Substance: CARBOPLATIN
     Dosage: 1 DOSAGE FORM, 1 CYCLICAL, 2 TREATMENT CYCLES
     Route: 042
     Dates: start: 202312, end: 202401
  7. ZEJULA [Suspect]
     Active Substance: NIRAPARIB
     Indication: Ovarian cancer metastatic
     Dosage: 300 MG, QD
     Route: 048
     Dates: start: 201909, end: 202103
  8. ZEJULA [Suspect]
     Active Substance: NIRAPARIB
     Dosage: 200 MG, QD
     Route: 048
     Dates: start: 202103, end: 202207
  9. RUBRACA [Suspect]
     Active Substance: RUCAPARIB CAMSYLATE
     Indication: Ovarian cancer metastatic
     Dosage: 500 MG, QD
     Route: 065
     Dates: start: 202207, end: 202312
  10. GEMCITABINE [Suspect]
     Active Substance: GEMCITABINE
     Indication: Ovarian cancer metastatic
     Dosage: 1 DOSAGE FORM, 1 CYCLICAL, 2 TREATMENT CYCLES
     Route: 048
     Dates: start: 202312, end: 202401

REACTIONS (1)
  - Myelodysplastic syndrome [Not Recovered/Not Resolved]

NARRATIVE: CASE EVENT DATE: 20250613
